FAERS Safety Report 12979445 (Version 1)
Quarter: 2016Q4

REPORT INFORMATION
  Report Type: Spontaneous
  Country: US (occurrence: US)
  Receive Date: 20161128
  Receipt Date: 20161128
  Transmission Date: 20170207
  Serious: Yes (Other)
  Sender: FDA-Public Use
  Company Number: US-PFIZER INC-2016540886

PATIENT

DRUGS (1)
  1. XALKORI [Suspect]
     Active Substance: CRIZOTINIB
     Dosage: UNK
     Dates: start: 2016

REACTIONS (4)
  - Acute pulmonary oedema [Unknown]
  - Vomiting [Unknown]
  - Pyrexia [Recovered/Resolved]
  - Nausea [Unknown]
